FAERS Safety Report 8125226-5 (Version None)
Quarter: 2012Q1

REPORT INFORMATION
  Report Type: 
  Country: None (occurrence: None)
  Receive Date: 20120206
  Receipt Date: 20120125
  Transmission Date: 20120608
  Serious: Yes (Hospitalization)
  Sender: FDA-Public Use
  Company Number: 2011-000077

PATIENT
  Age: 86 Year
  Sex: Female

DRUGS (12)
  1. LEVOTHYROXINE SODIUM [Concomitant]
  2. VITAMIN D [Concomitant]
  3. ZOCOR [Concomitant]
  4. SOMAC (PANTOPRAZOLE SODIUM SESQUIHYDRATE) [Concomitant]
  5. FISH OIL (FISH OIL) [Concomitant]
  6. SERETIDE (FLUTICASONE PROPIONATE, SALMETEROL XINAFOATE) [Concomitant]
  7. XANAX [Concomitant]
  8. ACTONEL [Suspect]
     Dosage: 35MG, ORAL
     Route: 048
     Dates: start: 20111121
  9. ALLEGRON (NORTRIPTYLINE HYDROCHLORIDE) [Concomitant]
  10. METOPROLOL TARTRATE [Concomitant]
  11. CARDIPIN /00340701/(NIFEDIPINE) [Concomitant]
  12. KARVEA (IRBESARTAN) [Concomitant]

REACTIONS (1)
  - ANGINA UNSTABLE [None]
